FAERS Safety Report 5121717-X (Version None)
Quarter: 2006Q4

REPORT INFORMATION
  Report Type: 
  Country: None (occurrence: None)
  Receive Date: 20061006
  Receipt Date: 20060929
  Transmission Date: 20070319
  Serious: Yes (Hospitalization)
  Sender: FDA-Public Use
  Company Number: ZA-AVENTIS-200620280GDDC

PATIENT
  Age: 42 Year
  Sex: Male

DRUGS (3)
  1. KETEK [Suspect]
     Indication: SINUSITIS
     Route: 048
     Dates: start: 20060825, end: 20060829
  2. DESELEX [Concomitant]
     Indication: SINUSITIS
     Dosage: DOSE: UNK
     Route: 048
     Dates: start: 20060825
  3. CONCOR                             /00802602/ [Concomitant]
     Indication: HYPERTENSION
     Dosage: DOSE: UNK
     Route: 048

REACTIONS (3)
  - ANOREXIA [None]
  - HEPATOTOXICITY [None]
  - MALAISE [None]
